FAERS Safety Report 23340497 (Version 1)
Quarter: 2023Q4

REPORT INFORMATION
  Report Type: Spontaneous
  Country: FR (occurrence: FR)
  Receive Date: 20231227
  Receipt Date: 20231227
  Transmission Date: 20240109
  Serious: Yes (Hospitalization, Other)
  Sender: FDA-Public Use
  Company Number: FR-MAJORELLE-202300262

PATIENT
  Age: 16 Year
  Sex: Female

DRUGS (6)
  1. CLOBAZAM [Suspect]
     Active Substance: CLOBAZAM
     Indication: Epilepsy
     Dosage: UNK
     Route: 065
  2. TRAMADOL HYDROCHLORIDE [Suspect]
     Active Substance: TRAMADOL HYDROCHLORIDE
     Indication: Product used for unknown indication
     Dosage: SYSTEMATICALLY
     Route: 065
     Dates: end: 20231126
  3. DESOGESTREL [Suspect]
     Active Substance: DESOGESTREL
     Indication: Endometriosis
     Dosage: 75 UG, QD
     Route: 048
     Dates: end: 20231126
  4. DESOGESTREL [Suspect]
     Active Substance: DESOGESTREL
     Dosage: 75 UG, QD
     Route: 048
     Dates: start: 20231128
  5. GABAPENTIN [Suspect]
     Active Substance: GABAPENTIN
     Indication: Epilepsy
     Dosage: UNK
     Route: 065
  6. AMITRIPTYLINE HYDROCHLORIDE [Suspect]
     Active Substance: AMITRIPTYLINE HYDROCHLORIDE
     Indication: Epilepsy
     Dosage: UNK
     Route: 065

REACTIONS (2)
  - Epilepsy [Not Recovered/Not Resolved]
  - Off label use [Unknown]

NARRATIVE: CASE EVENT DATE: 20231124
